FAERS Safety Report 11393819 (Version 1)
Quarter: 2015Q3

REPORT INFORMATION
  Report Type: Report from Study
  Country: US (occurrence: US)
  Receive Date: 20150819
  Receipt Date: 20150819
  Transmission Date: 20151125
  Serious: No
  Sender: FDA-Public Use
  Company Number: PHEH2015US015987

PATIENT
  Sex: Female

DRUGS (1)
  1. COSENTYX [Suspect]
     Active Substance: SECUKINUMAB
     Indication: PSORIASIS
     Dosage: 300 MG, QW
     Route: 058
     Dates: start: 20150727

REACTIONS (4)
  - Liver function test abnormal [Unknown]
  - Stomatitis [Recovering/Resolving]
  - Diarrhoea [Recovered/Resolved]
  - Flatulence [Recovered/Resolved]
